FAERS Safety Report 17455130 (Version 1)
Quarter: 2020Q1

REPORT INFORMATION
  Report Type: Spontaneous
  Country: US (occurrence: US)
  Receive Date: 20200211
  Receipt Date: 20200211
  Transmission Date: 20200409
  Serious: Yes (Hospitalization)
  Sender: FDA-Public Use
  Company Number: None

PATIENT
  Age: 73 Year
  Sex: Male
  Weight: 88.8 kg

DRUGS (2)
  1. IBRUTINIB [Suspect]
     Active Substance: IBRUTINIB
     Indication: WALDENSTROM^S MACROGLOBULINAEMIA
     Dosage: ?          OTHER FREQUENCY:DAILY 1-28;?
     Route: 048
     Dates: start: 20190823, end: 20191210
  2. IXAZOMIB [Suspect]
     Active Substance: IXAZOMIB
     Indication: WALDENSTROM^S MACROGLOBULINAEMIA
     Dosage: ?          OTHER FREQUENCY:1,8, AND 15;?
     Route: 048
     Dates: start: 20190821, end: 20191030

REACTIONS (6)
  - Hyponatraemia [None]
  - Oedema peripheral [None]
  - Hypogammaglobulinaemia [None]
  - Pyrexia [None]
  - Pneumonia [None]
  - Oedema [None]

NARRATIVE: CASE EVENT DATE: 20200121
